FAERS Safety Report 13523753 (Version 2)
Quarter: 2017Q4

REPORT INFORMATION
  Report Type: Spontaneous
  Country: US (occurrence: US)
  Receive Date: 20170508
  Receipt Date: 20171207
  Transmission Date: 20180320
  Serious: No
  Sender: FDA-Public Use
  Company Number: US-VIFOR (INTERNATIONAL) INC.-VIT-2017-03159

PATIENT
  Sex: Male

DRUGS (11)
  1. CLONIDINE. [Concomitant]
     Active Substance: CLONIDINE
  2. COLECALCIFEROL [Concomitant]
     Active Substance: CHOLECALCIFEROL
  3. AMLODIPINE [Concomitant]
     Active Substance: AMLODIPINE BESYLATE
  4. VELTASSA [Suspect]
     Active Substance: PATIROMER
     Indication: HYPERKALAEMIA
     Route: 048
     Dates: start: 20170225
  5. ACETYLSALICYLIC ACID [Concomitant]
     Active Substance: ASPIRIN
  6. FISH OIL [Concomitant]
     Active Substance: FISH OIL
  7. HUMULIN NOS [Concomitant]
     Active Substance: INSULIN HUMAN
  8. MAGNESIUM [Concomitant]
     Active Substance: MAGNESIUM
  9. SIMVASTATIN. [Concomitant]
     Active Substance: SIMVASTATIN
  10. METRONIDAZOLE. [Concomitant]
     Active Substance: METRONIDAZOLE
  11. BACTRIUM [Concomitant]

REACTIONS (2)
  - Treatment noncompliance [Not Recovered/Not Resolved]
  - Constipation [Not Recovered/Not Resolved]

NARRATIVE: CASE EVENT DATE: 2017
